FAERS Safety Report 9233303 (Version 1)
Quarter: 2013Q2

REPORT INFORMATION
  Report Type: Spontaneous
  Country: US (occurrence: US)
  Receive Date: 20130416
  Receipt Date: 20130416
  Transmission Date: 20140414
  Serious: No
  Sender: FDA-Public Use
  Company Number: US-BANPHARM-20130922

PATIENT
  Age: 64 Year
  Sex: Male
  Weight: 88.45 kg

DRUGS (2)
  1. ALEVE LIQUID GELS 220MG [Suspect]
     Indication: TOOTHACHE
     Dosage: QID,
     Route: 048
     Dates: start: 20120417, end: 20120417
  2. ANTIBIOTIC [Concomitant]

REACTIONS (2)
  - Blood pressure increased [Recovered/Resolved]
  - Incorrect dose administered [Unknown]
